FAERS Safety Report 12491416 (Version 4)
Quarter: 2016Q3

REPORT INFORMATION
  Report Type: Spontaneous
  Country: PL (occurrence: PL)
  Receive Date: 20160623
  Receipt Date: 20160715
  Transmission Date: 20161109
  Serious: Yes (Other)
  Sender: FDA-Public Use
  Company Number: PL-ROCHE-1780965

PATIENT
  Age: 13 Year
  Sex: Female
  Weight: 25.7 kg

DRUGS (4)
  1. ENCORTON [Concomitant]
     Active Substance: PREDNISONE
     Indication: JUVENILE IDIOPATHIC ARTHRITIS
     Dosage: DOSE REPORTED AS 4-6 MG, TREATED SINCE 11 YEARS.
     Route: 048
  2. ROACTEMRA [Suspect]
     Active Substance: TOCILIZUMAB
     Indication: JUVENILE IDIOPATHIC ARTHRITIS
     Dosage: TREATMENT DURATION: 4 YEARS.
     Route: 042
     Dates: start: 201203, end: 20160622
  3. METEX (POLAND) [Concomitant]
     Indication: JUVENILE IDIOPATHIC ARTHRITIS
     Route: 058
     Dates: start: 2014
  4. OCTAGAM IMMUNE GLOBULIN (HUMAN) [Concomitant]
     Active Substance: HUMAN IMMUNOGLOBULIN G
     Route: 065

REACTIONS (7)
  - Leukopenia [Recovered/Resolved]
  - CD4 lymphocytes decreased [Unknown]
  - Marrow hyperplasia [Unknown]
  - Platelet count decreased [Recovered/Resolved]
  - T-lymphocyte count decreased [Unknown]
  - Lymphocytosis [Unknown]
  - Juvenile idiopathic arthritis [Unknown]

NARRATIVE: CASE EVENT DATE: 2015
